FAERS Safety Report 9003511 (Version 3)
Quarter: 2013Q1

REPORT INFORMATION
  Report Type: Spontaneous
  Country: US (occurrence: US)
  Receive Date: 20130108
  Receipt Date: 20130122
  Transmission Date: 20140127
  Serious: Yes (Other)
  Sender: FDA-Public Use
  Company Number: US-PFIZER INC-2013001539

PATIENT
  Age: 42 Year
  Sex: Female
  Weight: 99.77 kg

DRUGS (16)
  1. TOVIAZ [Suspect]
     Indication: URINARY INCONTINENCE
     Dosage: 8 MG, 1X/DAY
     Route: 048
     Dates: end: 201212
  2. EFFEXOR XR [Suspect]
     Indication: ANXIETY
     Dosage: 75 MG, 1X/DAY
     Route: 048
  3. EFFEXOR XR [Suspect]
     Dosage: 225 MG (THREE 75MG CAPSULE), 1X/DAY
     Route: 048
     Dates: end: 201212
  4. GABAPENTIN [Concomitant]
     Dosage: 600 MG, 3X/DAY
     Dates: end: 201212
  5. OXCARBAZEPINE [Concomitant]
     Dosage: UNK
     Dates: end: 201212
  6. BACLOFEN [Concomitant]
     Dosage: 20 MG, 2X/DAY
     Dates: end: 201212
  7. CLONAZEPAM [Concomitant]
     Dosage: 1 MG, 2X/DAY
     Dates: end: 201212
  8. FLUOXETINE [Concomitant]
     Dosage: 20 MG, 1X/DAY
     Dates: end: 201212
  9. CYCLOBENZAPRINE [Concomitant]
     Dosage: 10 MG, 1X/DAY
     Dates: end: 201212
  10. HYDROCODONE/IBUPROFEN [Concomitant]
     Dosage: 7.5/200 MG, 1X/DAY
     Dates: end: 201212
  11. RELPAX [Concomitant]
     Dosage: 40 MG, AS NEEDED
     Dates: end: 201212
  12. IMITREX [Concomitant]
     Dosage: 6 MG INJECTION UNK
     Dates: end: 201212
  13. RANITIDINE [Concomitant]
     Dosage: 300 MG, 2X/DAY
     Dates: end: 201212
  14. AMITRIPTYLINE [Concomitant]
     Dosage: UNK, 1X/DAY
     Route: 048
     Dates: end: 201212
  15. LIDODERM [Concomitant]
     Dosage: UNK, AS NEEDED
     Dates: end: 201212
  16. SYMBICORT [Concomitant]
     Dosage: 160/4.5, 2X/DAY
     Dates: end: 201212

REACTIONS (4)
  - Anxiety [Not Recovered/Not Resolved]
  - Feeling jittery [Not Recovered/Not Resolved]
  - Insomnia [Not Recovered/Not Resolved]
  - Nausea [Recovered/Resolved]
